FAERS Safety Report 11992098 (Version 1)
Quarter: 2016Q1

REPORT INFORMATION
  Report Type: Spontaneous
  Country: US (occurrence: US)
  Receive Date: 20160203
  Receipt Date: 20160203
  Transmission Date: 20160526
  Serious: No
  Sender: FDA-Public Use
  Company Number: US-JNJFOC-20160108125

PATIENT
  Age: 24 Month
  Sex: Female

DRUGS (3)
  1. CHILDRENS MOTRIN [Suspect]
     Active Substance: IBUPROFEN
     Route: 048
  2. PEDIACARE CHILDRENS MULTISYMTOM COLD [Concomitant]
     Indication: PRODUCT USED FOR UNKNOWN INDICATION
  3. CHILDRENS MOTRIN [Suspect]
     Active Substance: IBUPROFEN
     Indication: COUGH
     Dosage: 1 TSP, ONCE
     Route: 048

REACTIONS (3)
  - Hypersomnia [Unknown]
  - Product use issue [Unknown]
  - Off label use [Unknown]
